FAERS Safety Report 18612085 (Version 1)
Quarter: 2020Q4

REPORT INFORMATION
  Report Type: Spontaneous
  Country: US (occurrence: US)
  Receive Date: 20201214
  Receipt Date: 20201214
  Transmission Date: 20210114
  Serious: Yes (Other)
  Sender: FDA-Public Use
  Company Number: None

PATIENT
  Age: 38 Year
  Sex: Male
  Weight: 99.8 kg

DRUGS (14)
  1. ENOXAPARIN [Concomitant]
     Active Substance: ENOXAPARIN
     Dates: start: 20201208
  2. POLYETHYLENE GLYCOL [Concomitant]
     Active Substance: POLYETHYLENE GLYCOLS
     Dates: start: 20201211
  3. ACETAMINOPHEN. [Concomitant]
     Active Substance: ACETAMINOPHEN
     Dates: start: 20201208, end: 20201209
  4. BENZONATATE. [Concomitant]
     Active Substance: BENZONATATE
     Dates: start: 20201208
  5. SENNA [Concomitant]
     Active Substance: SENNA LEAF\SENNOSIDES\SENNOSIDES A AND B
     Dates: start: 20201211
  6. ALBUTEROL. [Concomitant]
     Active Substance: ALBUTEROL
     Dates: start: 20201208, end: 20201208
  7. FUROSEMIDE. [Concomitant]
     Active Substance: FUROSEMIDE
     Dates: start: 20201211
  8. DEXTROMETHORPHAN-GUAIFENESIN [Concomitant]
     Active Substance: DEXTROMETHORPHAN\GUAIFENESIN
     Dates: start: 20201208, end: 20201211
  9. CONVALENSCENT PLASMA OR PLACEBO STUDY [Concomitant]
     Dates: start: 20201209, end: 20201209
  10. CODEINE-GUIFENESIN [Concomitant]
     Dates: start: 20201208
  11. DEXAMETHASONE. [Concomitant]
     Active Substance: DEXAMETHASONE
     Dates: start: 20201208
  12. INFLUENZA VACCINE (FLUARIX QUAD) [Concomitant]
     Dates: start: 20201209, end: 20201209
  13. POTASSIUM CHLORIDE. [Concomitant]
     Active Substance: POTASSIUM CHLORIDE
     Dates: start: 20201208, end: 20201208
  14. REMDESIVIR. [Suspect]
     Active Substance: REMDESIVIR
     Indication: COVID-19
     Route: 042
     Dates: start: 20201208, end: 20201211

REACTIONS (5)
  - Oedema peripheral [None]
  - Constipation [None]
  - Cough [None]
  - Liver function test increased [None]
  - Fluid overload [None]

NARRATIVE: CASE EVENT DATE: 20201210
